FAERS Safety Report 20478766 (Version 1)
Quarter: 2022Q1

REPORT INFORMATION
  Report Type: Spontaneous
  Country: US (occurrence: US)
  Receive Date: 20220216
  Receipt Date: 20220216
  Transmission Date: 20220423
  Serious: No
  Sender: FDA-Public Use
  Company Number: US-GLAXOSMITHKLINE-US2022AMR027442

PATIENT
  Sex: Male

DRUGS (1)
  1. NUCALA [Suspect]
     Active Substance: MEPOLIZUMAB
     Indication: Product used for unknown indication
     Dosage: 1 ML, EVERY 4 WEEKS,100-MG/ML MEPOLIZUMAB IN 1 ML PER SINGLE-DOSE VIAL EVERY 4 WEEKS

REACTIONS (2)
  - Myalgia [Unknown]
  - Arthralgia [Unknown]
